FAERS Safety Report 25506691 (Version 1)
Quarter: 2025Q3

REPORT INFORMATION
  Report Type: Spontaneous
  Country: US (occurrence: US)
  Receive Date: 20250702
  Receipt Date: 20250702
  Transmission Date: 20251021
  Serious: Yes (Other)
  Sender: ELI LILLY AND COMPANY
  Company Number: US-ELI_LILLY_AND_COMPANY-US202506020808

PATIENT
  Age: 43 Year
  Sex: Female

DRUGS (2)
  1. EMGALITY [Suspect]
     Active Substance: GALCANEZUMAB-GNLM
     Indication: Migraine
     Route: 058
     Dates: start: 20250617
  2. EFFEXOR [Concomitant]
     Active Substance: VENLAFAXINE HYDROCHLORIDE
     Indication: Asthma
     Dosage: 75 MG, DAILY
     Route: 065

REACTIONS (12)
  - Pyrexia [Unknown]
  - Pain [Unknown]
  - Joint stiffness [Unknown]
  - Head discomfort [Unknown]
  - Hyperhidrosis [Unknown]
  - Vomiting [Unknown]
  - Dehydration [Unknown]
  - Burning sensation [Unknown]
  - Feeling cold [Unknown]
  - Tremor [Unknown]
  - Dyspnoea [Unknown]
  - Injection site vesicles [Unknown]

NARRATIVE: CASE EVENT DATE: 20250617
